FAERS Safety Report 24914792 (Version 1)
Quarter: 2025Q1

REPORT INFORMATION
  Report Type: Spontaneous
  Country: US (occurrence: US)
  Receive Date: 20250203
  Receipt Date: 20250203
  Transmission Date: 20250409
  Serious: Yes (Other)
  Sender: JOHNSON AND JOHNSON
  Company Number: US-JNJFOC-20250172439

PATIENT

DRUGS (3)
  1. CARVYKTI [Suspect]
     Active Substance: CILTACABTAGENE AUTOLEUCEL
     Indication: Plasma cell myeloma
     Route: 065
  2. ZANUBRUTINIB [Concomitant]
     Active Substance: ZANUBRUTINIB
  3. ACALABRUTINIB [Concomitant]
     Active Substance: ACALABRUTINIB

REACTIONS (5)
  - Myocardial infarction [Unknown]
  - Cardiac failure [Unknown]
  - Atrial fibrillation [Unknown]
  - Cytokine release syndrome [Unknown]
  - Conduction disorder [Unknown]
